FAERS Safety Report 24350491 (Version 3)
Quarter: 2024Q4

REPORT INFORMATION
  Report Type: Spontaneous
  Country: IE (occurrence: IE)
  Receive Date: 20240923
  Receipt Date: 20241106
  Transmission Date: 20250114
  Serious: Yes (Other)
  Sender: MYLAN
  Company Number: IE-MYLANLABS-2024M1085022

PATIENT
  Sex: Male

DRUGS (2)
  1. CLOZARIL [Suspect]
     Active Substance: CLOZAPINE
     Indication: Schizophrenia
     Dosage: UNK
     Route: 048
     Dates: start: 20190723, end: 20240911
  2. CLOZARIL [Suspect]
     Active Substance: CLOZAPINE
     Dosage: UNK
     Route: 048
     Dates: start: 20241010

REACTIONS (6)
  - Generalised tonic-clonic seizure [Unknown]
  - Skin laceration [Unknown]
  - Antipsychotic drug level increased [Unknown]
  - Anxiety [Unknown]
  - Agitation [Unknown]
  - Therapy cessation [Unknown]
